FAERS Safety Report 15941269 (Version 3)
Quarter: 2020Q1

REPORT INFORMATION
  Report Type: Spontaneous
  Country: US (occurrence: US)
  Receive Date: 20190208
  Receipt Date: 20200311
  Transmission Date: 20200409
  Serious: Yes (Other)
  Sender: FDA-Public Use
  Company Number: US-ASTRAZENECA-2019SE10938

PATIENT
  Age: 20393 Day
  Sex: Female

DRUGS (37)
  1. LEVOTHYROXINE. [Concomitant]
     Active Substance: LEVOTHYROXINE
  2. TUMS [Concomitant]
     Active Substance: CALCIUM CARBONATE
  3. LASIX [Concomitant]
     Active Substance: FUROSEMIDE
  4. CALCIUM [Concomitant]
     Active Substance: CALCIUM
  5. IBUPROFEN. [Concomitant]
     Active Substance: IBUPROFEN
  6. POTASSIUM [Concomitant]
     Active Substance: POTASSIUM
  7. PRILOSEC [Suspect]
     Active Substance: OMEPRAZOLE MAGNESIUM
     Indication: GASTROOESOPHAGEAL REFLUX DISEASE
     Dosage: DELAYED RELEASE20.0MG UNKNOWN
     Route: 048
  8. CYMBALTA [Concomitant]
     Active Substance: DULOXETINE HYDROCHLORIDE
  9. PRILOSEC OTC [Suspect]
     Active Substance: OMEPRAZOLE MAGNESIUM
     Dosage: DELAYED RELEASE20.0MG UNKNOWN
     Route: 048
     Dates: start: 20151020
  10. PREVACID [Suspect]
     Active Substance: LANSOPRAZOLE
     Indication: GASTROOESOPHAGEAL REFLUX DISEASE
     Route: 065
     Dates: start: 2005
  11. NASONEX [Concomitant]
     Active Substance: MOMETASONE FUROATE
  12. OXYCODONE [Concomitant]
     Active Substance: OXYCODONE
     Route: 065
     Dates: start: 20151217
  13. ADVAIR HFA [Concomitant]
     Active Substance: FLUTICASONE PROPIONATE\SALMETEROL XINAFOATE
  14. ALLOPURINOL. [Concomitant]
     Active Substance: ALLOPURINOL
  15. PRILOSEC [Suspect]
     Active Substance: OMEPRAZOLE MAGNESIUM
     Indication: GASTROOESOPHAGEAL REFLUX DISEASE
     Route: 048
     Dates: start: 2005
  16. LACTULOSE. [Concomitant]
     Active Substance: LACTULOSE
  17. PROAIR HFA [Concomitant]
     Active Substance: ALBUTEROL SULFATE
     Route: 065
     Dates: start: 20151020
  18. BACLOFEN. [Concomitant]
     Active Substance: BACLOFEN
  19. IBUPROFEN. [Concomitant]
     Active Substance: IBUPROFEN
  20. PREVACID 24 HR [Suspect]
     Active Substance: LANSOPRAZOLE
     Route: 065
  21. LOSARTAN. [Concomitant]
     Active Substance: LOSARTAN
  22. PEPCID AC [Concomitant]
     Active Substance: FAMOTIDINE
  23. ZANTAC [Concomitant]
     Active Substance: RANITIDINE HYDROCHLORIDE
  24. ACYCLOVIR. [Concomitant]
     Active Substance: ACYCLOVIR
  25. DIAZEPAM. [Concomitant]
     Active Substance: DIAZEPAM
  26. ASPIRIN. [Concomitant]
     Active Substance: ASPIRIN
  27. PRILOSEC [Suspect]
     Active Substance: OMEPRAZOLE MAGNESIUM
     Indication: GASTROOESOPHAGEAL REFLUX DISEASE
     Dosage: FOR MULTIPLE AND VARIOUS YEARS
     Route: 048
  28. INDAPAMIDE. [Concomitant]
     Active Substance: INDAPAMIDE
  29. METHADONE [Concomitant]
     Active Substance: METHADONE HYDROCHLORIDE
  30. CALCIUM [Concomitant]
     Active Substance: CALCIUM
  31. TRIAMCINOLONE [Concomitant]
     Active Substance: TRIAMCINOLONE
     Route: 065
     Dates: start: 20151217
  32. DICLOFENAC [Concomitant]
     Active Substance: DICLOFENAC
  33. GABAPENTIN. [Concomitant]
     Active Substance: GABAPENTIN
  34. POTASSIUM [Concomitant]
     Active Substance: POTASSIUM
  35. ALKA-SELTZER [Concomitant]
     Active Substance: ANHYDROUS CITRIC ACID\ASPIRIN\SODIUM BICARBONATE
  36. PROMETHAZINE [Concomitant]
     Active Substance: PROMETHAZINE HYDROCHLORIDE
  37. EFFERVESCENT [Concomitant]

REACTIONS (4)
  - Renal injury [Unknown]
  - Rebound acid hypersecretion [Unknown]
  - Renal failure [Not Recovered/Not Resolved]
  - Chronic kidney disease [Unknown]

NARRATIVE: CASE EVENT DATE: 20151020
